FAERS Safety Report 7060087-7 (Version None)
Quarter: 2010Q4

REPORT INFORMATION
  Report Type: 
  Country: None (occurrence: None)
  Receive Date: 20101025
  Receipt Date: 20101020
  Transmission Date: 20110411
  Serious: Yes (Death, Hospitalization)
  Sender: FDA-Public Use
  Company Number: BR-ASTRAZENECA-2010SE49620

PATIENT
  Age: 86 Year
  Sex: Male

DRUGS (1)
  1. SEROQUEL [Suspect]
     Indication: CONFUSIONAL STATE
     Route: 048
     Dates: start: 20060101, end: 20080101

REACTIONS (5)
  - FALL [None]
  - LOWER LIMB FRACTURE [None]
  - OFF LABEL USE [None]
  - RENAL FAILURE [None]
  - THROMBOSIS [None]
